FAERS Safety Report 7448162-6 (Version None)
Quarter: 2011Q2

REPORT INFORMATION
  Report Type: 
  Country: None (occurrence: None)
  Receive Date: 20110429
  Receipt Date: 20101115
  Transmission Date: 20111010
  Serious: No
  Sender: FDA-Public Use
  Company Number: US-ASTRAZENECA-2009UW00340

PATIENT
  Age: 38 Year
  Sex: Female
  Weight: 68 kg

DRUGS (4)
  1. MERCAPTOPURINE [Concomitant]
  2. NEXIUM [Suspect]
     Indication: GASTROOESOPHAGEAL REFLUX DISEASE
     Route: 048
     Dates: start: 20060101
  3. ZOLOFT [Concomitant]
  4. CLARITIN [Concomitant]

REACTIONS (2)
  - RASH [None]
  - PRODUCT TASTE ABNORMAL [None]
